FAERS Safety Report 5419080-X (Version None)
Quarter: 2007Q3

REPORT INFORMATION
  Report Type: 
  Country: None (occurrence: None)
  Receive Date: 20070817
  Receipt Date: 20070817
  Transmission Date: 20080115
  Serious: Yes (Death, Hospitalization)
  Sender: FDA-Public Use
  Company Number: None

PATIENT
  Age: 34 Year
  Sex: Female
  Weight: 43 kg

DRUGS (8)
  1. TENOFOVIR [Suspect]
     Indication: HIV INFECTION
     Dosage: 300 MG QD ORAL
     Route: 048
     Dates: start: 20070604, end: 20070730
  2. EMTRICITABINE [Suspect]
     Indication: HIV INFECTION
     Dosage: 200 MG QD ORAL
     Route: 048
     Dates: start: 20070604, end: 20070730
  3. KALETRA [Suspect]
     Indication: HIV INFECTION
     Dosage: 500 MG BID ORAL
     Route: 048
     Dates: start: 20070604, end: 20070730
  4. FERROUS SULFATE TAB [Concomitant]
  5. FOLATE [Concomitant]
  6. FLUCONAZOLE [Concomitant]
  7. OMEPRAZOLE [Concomitant]
  8. CEFACLOR [Concomitant]

REACTIONS (27)
  - ABASIA [None]
  - ABDOMINAL PAIN [None]
  - ASPARTATE AMINOTRANSFERASE INCREASED [None]
  - ASTHENIA [None]
  - BLOOD ALKALINE PHOSPHATASE INCREASED [None]
  - BLOOD CREATININE INCREASED [None]
  - BLOOD POTASSIUM DECREASED [None]
  - CACHEXIA [None]
  - CONFUSIONAL STATE [None]
  - DIARRHOEA [None]
  - DISEASE PROGRESSION [None]
  - DYSARTHRIA [None]
  - HAEMOGLOBIN DECREASED [None]
  - HEPATIC FAILURE [None]
  - HEPATIC INFARCTION [None]
  - HIV INFECTION [None]
  - JAUNDICE [None]
  - LUNG DISORDER [None]
  - MALAISE [None]
  - NAUSEA [None]
  - OPPORTUNISTIC INFECTION [None]
  - OROPHARYNGEAL CANDIDIASIS [None]
  - PALLOR [None]
  - PYREXIA [None]
  - RETROVIRAL INFECTION [None]
  - VOMITING [None]
  - WHITE BLOOD CELL COUNT INCREASED [None]
